FAERS Safety Report 6843552-4 (Version None)
Quarter: 2010Q3

REPORT INFORMATION
  Report Type: 
  Country: None (occurrence: None)
  Receive Date: 20100715
  Receipt Date: 20100604
  Transmission Date: 20110219
  Serious: Yes (Death)
  Sender: FDA-Public Use
  Company Number: US-ASTRAZENECA-2009UW11091

PATIENT
  Age: 46 Year
  Sex: Female
  Weight: 100.2 kg

DRUGS (10)
  1. SEROQUEL [Suspect]
     Route: 048
     Dates: start: 20030422
  2. PREVACID [Concomitant]
     Dates: start: 20050202
  3. PROZAC [Concomitant]
     Route: 048
     Dates: start: 20030414
  4. HYDROCHLOROTHIAZIDE [Concomitant]
     Dates: start: 20050202
  5. TOPAMAX [Concomitant]
     Dates: start: 20050202
  6. DARVOCET [Concomitant]
     Dates: start: 20050202
  7. NITROGLYCERIN [Concomitant]
     Dosage: PRN
     Dates: start: 20050202
  8. CLONAZEPAM [Concomitant]
     Dosage: TK 1 TO 2 TS PO TID
     Route: 048
     Dates: start: 20030610
  9. LANSOPRAZOLE [Concomitant]
     Indication: GASTROOESOPHAGEAL REFLUX DISEASE
     Route: 048
     Dates: start: 20051128
  10. AMLODIPINE [Concomitant]
     Route: 048
     Dates: start: 20051108

REACTIONS (2)
  - CONGESTIVE CARDIOMYOPATHY [None]
  - DIABETES MELLITUS [None]
